FAERS Safety Report 4399783-9 (Version None)
Quarter: 2004Q3

REPORT INFORMATION
  Report Type: 
  Country: None (occurrence: None)
  Receive Date: 20040714
  Receipt Date: 20040701
  Transmission Date: 20050211
  Serious: Yes (Hospitalization)
  Sender: FDA-Public Use
  Company Number: JP-JNJFOC-20031003513

PATIENT
  Age: 66 Year
  Sex: Female
  Weight: 50 kg

DRUGS (13)
  1. REMICADE [Suspect]
     Indication: RHEUMATOID ARTHRITIS
     Dosage: 150 MG, 1 IN 1 AS NECESSARY, INTRAVENOUS DRIP
     Route: 041
     Dates: start: 20030818, end: 20030818
  2. REMICADE [Suspect]
     Indication: RHEUMATOID ARTHRITIS
     Dosage: 150 MG, 1 IN 1 AS NECESSARY, INTRAVENOUS DRIP
     Route: 041
     Dates: start: 20030831, end: 20030831
  3. REMICADE [Suspect]
     Indication: RHEUMATOID ARTHRITIS
     Dosage: 150 MG, 1 IN 1 AS NECESSARY, INTRAVENOUS DRIP
     Route: 041
     Dates: start: 20030929, end: 20030929
  4. PREDNISOLONE [Suspect]
     Indication: RHEUMATOID ARTHRITIS
     Dosage: SEE IMAGE
     Route: 048
     Dates: start: 20030625, end: 20030903
  5. PREDNISOLONE [Suspect]
     Indication: RHEUMATOID ARTHRITIS
     Dosage: SEE IMAGE
     Route: 048
     Dates: start: 20030904, end: 20030930
  6. PREDNISOLONE [Suspect]
     Indication: RHEUMATOID ARTHRITIS
     Dosage: SEE IMAGE
     Route: 048
     Dates: start: 20031001, end: 20031022
  7. PREDNISOLONE [Suspect]
     Indication: RHEUMATOID ARTHRITIS
     Dosage: SEE IMAGE
     Route: 048
     Dates: start: 20031204
  8. HYPEN (ETODOLAC) TABLETS [Concomitant]
  9. BAYLOTENSIN (NITRENDIPINE) TABLETS [Concomitant]
  10. ISONIAZID [Concomitant]
  11. CLARITHROMYCIN [Concomitant]
  12. FOLIC ACID [Concomitant]
  13. ISONIAZID [Concomitant]

REACTIONS (13)
  - ACINETOBACTER INFECTION [None]
  - BACTERIAL INFECTION [None]
  - BRONCHIAL INFECTION [None]
  - CHILLS [None]
  - DRUG INTERACTION [None]
  - INFECTION IN AN IMMUNOCOMPROMISED HOST [None]
  - KLEBSIELLA INFECTION [None]
  - LYMPHOCYTE STIMULATION TEST POSITIVE [None]
  - PNEUMOCYSTIS CARINII PNEUMONIA [None]
  - PYREXIA [None]
  - SPUTUM CULTURE POSITIVE [None]
  - STREPTOCOCCAL INFECTION [None]
  - VOMITING [None]
